FAERS Safety Report 5891098-2 (Version None)
Quarter: 2008Q3

REPORT INFORMATION
  Report Type: 
  Country: None (occurrence: None)
  Receive Date: 20080918
  Receipt Date: 20080918
  Transmission Date: 20090109
  Serious: Yes (Other)
  Sender: FDA-Public Use
  Company Number: None

PATIENT
  Age: 47 Year
  Sex: Female
  Weight: 70.3075 kg

DRUGS (1)
  1. LAMOTRIGINE [Suspect]
     Indication: MOOD DISORDER DUE TO A GENERAL MEDICAL CONDITION
     Dosage: 150MG BID PO
     Route: 048
     Dates: start: 20080825, end: 20080830

REACTIONS (8)
  - FEELING HOT [None]
  - JOINT SWELLING [None]
  - PAIN [None]
  - PYREXIA [None]
  - RASH ERYTHEMATOUS [None]
  - RASH MACULO-PAPULAR [None]
  - SEDATION [None]
  - URTICARIA [None]
